FAERS Safety Report 7651580-4 (Version None)
Quarter: 2011Q3

REPORT INFORMATION
  Report Type: 
  Country: None (occurrence: None)
  Receive Date: 20110802
  Receipt Date: 20110725
  Transmission Date: 20111222
  Serious: Yes (Hospitalization, Other)
  Sender: FDA-Public Use
  Company Number: PHEH2009US02429

PATIENT
  Sex: Female
  Weight: 45.805 kg

DRUGS (69)
  1. ZOMETA [Suspect]
     Indication: NEOPLASM MALIGNANT
     Dosage: 3.5 MG, QMO
     Dates: start: 20070515, end: 20071218
  2. AVELOX [Concomitant]
  3. LOMOTIL [Concomitant]
  4. QUESTRAN [Concomitant]
  5. MEGACE [Concomitant]
  6. ULTRAM [Concomitant]
     Dosage: 50 MG, Q4H PRN
  7. ZOFRAN [Concomitant]
     Dosage: 4 MG, Q4H PRN
  8. LIDOCAINE HYDROCHLORIDE [Concomitant]
     Dosage: 50 ML, UNK
  9. SENSORCAINE W/EPINEPHRINE BITARTRATE [Concomitant]
     Dosage: 30 ML, UNK
  10. BENADRYL ^ACHE^ [Concomitant]
  11. DEXAMETHASONE [Concomitant]
  12. TYLENOL-500 [Concomitant]
  13. FLOVENT [Concomitant]
  14. PAXIL [Concomitant]
  15. COUMADIN [Concomitant]
  16. CHEMOTHERAPEUTICS NOS [Concomitant]
  17. CLINDAMYCIN [Concomitant]
  18. FLUCONAZOLE [Concomitant]
     Dosage: 100 MG, DAILY
     Route: 048
  19. WARFARIN SODIUM [Concomitant]
     Dosage: 1 MG, DAILY
  20. MYCELEX [Concomitant]
  21. MINOCIN [Concomitant]
  22. NEURONTIN [Concomitant]
  23. ALBUTEROL SULFATE AUTOHALER [Concomitant]
  24. OXYCODONE HCL [Concomitant]
  25. TUSSIONEX [Concomitant]
  26. NOVOLOG [Concomitant]
  27. PENICILLIN V POTASSIUM [Concomitant]
     Dosage: 500 MG, 4 X DAILY
     Route: 048
  28. MIRTAZAPINE [Concomitant]
     Dosage: 15 MG, DAILY
     Route: 048
  29. TAXOTERE [Concomitant]
     Dates: start: 20070515
  30. REGLAN [Concomitant]
  31. WELLBUTRIN [Concomitant]
  32. DECADRON [Concomitant]
  33. HERCEPTIN [Concomitant]
  34. MYCOSTATIN [Concomitant]
  35. DIFLUCAN [Concomitant]
  36. TYKERB [Concomitant]
     Dosage: 1250 MG,  DAILY
  37. ALPRAZOLAM [Concomitant]
     Dosage: 0.25 MG, EVERY 8 HOURS AS NEEDED
     Route: 048
  38. HYDROCODONE [Concomitant]
     Dosage: 325 MG,  (2 TABLETS), EVERY 6 HOURS AS NEEDED
     Route: 048
  39. REMERON [Concomitant]
  40. PROTONIX [Concomitant]
  41. INSULIN [Concomitant]
     Indication: TYPE 1 DIABETES MELLITUS
  42. XELODA [Concomitant]
  43. ATARAX [Concomitant]
  44. ACETAMINOPHEN AND HYDROCODONE BITARTRATE [Concomitant]
  45. ATROVENT [Concomitant]
  46. PERIDEX [Concomitant]
  47. PHENERGAN [Concomitant]
     Dosage: 25 MG, Q6H PRN
  48. AMOXICILLIN [Concomitant]
  49. EMLA [Concomitant]
  50. KEFLEX [Concomitant]
     Dosage: 500 MG, BID
  51. CYCLOBENZAPRINE [Concomitant]
     Dosage: 10 MG, EVERY 8 HOURS AS NEEDED
     Route: 048
  52. ZOLPIDEM [Concomitant]
     Dosage: 5 MG,AT THE HOUR OF BEDTIME AS NEEDED
     Route: 048
  53. LANTUS [Concomitant]
  54. RADIATION [Concomitant]
  55. RADIATION THERAPY [Concomitant]
     Dates: start: 20070601
  56. ACTIVELLA [Concomitant]
  57. HERCEPTIN [Concomitant]
  58. HYDROXYZINE HYDROCHLORIDE [Concomitant]
  59. FLEXERIL [Concomitant]
  60. XANAX [Concomitant]
     Dosage: 0.5 MG,  AS NEEDED
  61. FLUDROCORTISONE ACETATE [Concomitant]
     Dosage: 0.1 MG, DAILY
     Route: 048
  62. VICODIN [Concomitant]
  63. DARVOCET-N 50 [Concomitant]
  64. FLORINEF [Concomitant]
  65. HUMALOG [Concomitant]
  66. COLACE [Concomitant]
  67. NICOTINE [Concomitant]
  68. LOVENOX [Concomitant]
  69. DUONEB [Concomitant]

REACTIONS (100)
  - SCAR [None]
  - ANXIETY [None]
  - CONVULSION [None]
  - COUGH [None]
  - HYPOTENSION [None]
  - PNEUMONITIS [None]
  - GINGIVAL PAIN [None]
  - DIABETIC KETOACIDOSIS [None]
  - DYSPHAGIA [None]
  - DYSPNOEA [None]
  - PYREXIA [None]
  - LEFT VENTRICULAR DYSFUNCTION [None]
  - PHYSICAL DISABILITY [None]
  - EATING DISORDER [None]
  - ANHEDONIA [None]
  - DIZZINESS [None]
  - EMPHYSEMA [None]
  - METASTASES TO BONE [None]
  - DEHYDRATION [None]
  - BONE LOSS [None]
  - GINGIVAL BLEEDING [None]
  - OEDEMA [None]
  - ATRIAL TACHYCARDIA [None]
  - HYPOGLYCAEMIA [None]
  - CACHEXIA [None]
  - DISCOMFORT [None]
  - PERIODONTITIS [None]
  - ABDOMINAL PAIN UPPER [None]
  - HEADACHE [None]
  - BLOOD PRESSURE ABNORMAL [None]
  - BODY TEMPERATURE INCREASED [None]
  - CANDIDIASIS [None]
  - OSTEOARTHRITIS [None]
  - ACTINOMYCOSIS [None]
  - ORAL DISORDER [None]
  - HIP FRACTURE [None]
  - RHINORRHOEA [None]
  - NASOPHARYNGITIS [None]
  - BLOOD PRESSURE INCREASED [None]
  - EMOTIONAL DISTRESS [None]
  - FISTULA [None]
  - LOOSE TOOTH [None]
  - METASTASES TO CENTRAL NERVOUS SYSTEM [None]
  - SINUSITIS [None]
  - PURULENT DISCHARGE [None]
  - DENTAL CARIES [None]
  - DELIRIUM [None]
  - UNRESPONSIVE TO STIMULI [None]
  - DIABETIC NEPHROPATHY [None]
  - UPPER-AIRWAY COUGH SYNDROME [None]
  - PULMONARY HYPERTENSION [None]
  - LIFE EXPECTANCY SHORTENED [None]
  - ANAEMIA [None]
  - TOOTH DISORDER [None]
  - TOOTH LOSS [None]
  - NEUROPATHY PERIPHERAL [None]
  - OESOPHAGITIS [None]
  - BONE DISORDER [None]
  - ASTHENIA [None]
  - PAIN [None]
  - HYPERGLYCAEMIA [None]
  - DEVICE MALFUNCTION [None]
  - VISION BLURRED [None]
  - DIPLOPIA [None]
  - HYPOPHAGIA [None]
  - MALNUTRITION [None]
  - DIVERTICULUM [None]
  - DRY MOUTH [None]
  - RIB FRACTURE [None]
  - OSTEOPOROSIS [None]
  - EDENTULOUS [None]
  - OSTEOMYELITIS [None]
  - RETINOPATHY [None]
  - ARRHYTHMIA [None]
  - FEMUR FRACTURE [None]
  - LUNG NEOPLASM MALIGNANT [None]
  - ATELECTASIS [None]
  - CONSTIPATION [None]
  - INJURY [None]
  - FALL [None]
  - GAIT DISTURBANCE [None]
  - NEOPLASM [None]
  - SENSITIVITY OF TEETH [None]
  - RENAL FAILURE [None]
  - NAUSEA [None]
  - ODYNOPHAGIA [None]
  - HYPOKINESIA [None]
  - CONGESTIVE CARDIOMYOPATHY [None]
  - OSTEONECROSIS OF JAW [None]
  - TOOTH FRACTURE [None]
  - TOOTH INFECTION [None]
  - BACK PAIN [None]
  - DIARRHOEA [None]
  - DENTAL PROSTHESIS USER [None]
  - PAIN IN JAW [None]
  - NEOPLASM RECURRENCE [None]
  - ULCER [None]
  - CHRONIC OBSTRUCTIVE PULMONARY DISEASE [None]
  - URINARY RETENTION [None]
  - FATIGUE [None]
